FAERS Safety Report 9281459 (Version 2)
Quarter: 2013Q2

REPORT INFORMATION
  Report Type: Spontaneous
  Country: BR (occurrence: BR)
  Receive Date: 20130509
  Receipt Date: 20130516
  Transmission Date: 20140414
  Serious: Yes (Other)
  Sender: FDA-Public Use
  Company Number: BR-ABBOTT-13P-020-1086135-00

PATIENT
  Age: 13 Year
  Sex: Male
  Weight: 40 kg

DRUGS (3)
  1. LUPRON DEPOT-PED [Suspect]
     Indication: PUBERTY
     Route: 030
     Dates: start: 201103, end: 201208
  2. LUPRON DEPOT-PED [Suspect]
     Indication: PROPHYLAXIS
     Dates: start: 201305
  3. AMINO ACIDS AND VITAMINS FORMULA [Concomitant]
     Indication: PRODUCT USED FOR UNKNOWN INDICATION
     Dosage: ARGININE 500 MG + ZINC 5 MG + VITAMIN D 20 MG

REACTIONS (4)
  - IgA nephropathy [Recovered/Resolved]
  - Tonsillitis [Recovered/Resolved]
  - Tonsillitis [Recovered/Resolved]
  - Blood urine present [Recovered/Resolved]
